FAERS Safety Report 7713706-3 (Version None)
Quarter: 2011Q3

REPORT INFORMATION
  Report Type: 
  Country: None (occurrence: None)
  Receive Date: 20110826
  Receipt Date: 20110824
  Transmission Date: 20111222
  Serious: Yes (Death, Hospitalization, Other)
  Sender: FDA-Public Use
  Company Number: US-PFIZER INC-2008150181

PATIENT
  Sex: Female

DRUGS (5)
  1. AMITRIPTYLINE [Concomitant]
     Dosage: UNK
     Dates: start: 20041029, end: 20070219
  2. NEURONTIN [Suspect]
     Indication: PAIN
     Dosage: 300 MG TO 800 MG
     Route: 048
     Dates: start: 20031222, end: 20070401
  3. GABAPENTIN [Suspect]
     Dosage: UNK
  4. TRAMADOL [Concomitant]
     Dosage: UNK
     Dates: start: 20050223, end: 20070219
  5. MIRTAZAPINE [Concomitant]
     Dosage: UNK
     Dates: start: 20040122, end: 20070219

REACTIONS (4)
  - ANXIETY [None]
  - DRUG INEFFECTIVE [None]
  - COMPLETED SUICIDE [None]
  - SUICIDAL IDEATION [None]
